FAERS Safety Report 4920083-X (Version None)
Quarter: 2006Q1

REPORT INFORMATION
  Report Type: 
  Country: None (occurrence: None)
  Receive Date: 20060223
  Receipt Date: 19991006
  Transmission Date: 20060701
  Serious: Yes (Life-Threatening, Hospitalization, Other)
  Sender: FDA-Public Use
  Company Number: US-1999-DE-U0038

PATIENT
  Sex: Male
  Weight: 90.7 kg

DRUGS (10)
  1. PRAMIPEXOLE DIHYDROCHLORIDE [Suspect]
     Indication: PARKINSON'S DISEASE
     Route: 048
     Dates: start: 19970415, end: 20010711
  2. SYMMETREL [Concomitant]
     Dates: start: 19960415
  3. PSORCON [Concomitant]
     Dates: start: 19970305
  4. VOLTAREN [Concomitant]
     Dates: start: 19970404
  5. PROSCAR [Concomitant]
     Dates: start: 19960614
  6. TRENTAL [Concomitant]
     Dates: start: 19961129
  7. TAZORAC [Concomitant]
     Dates: start: 19970423
  8. CARDURA [Concomitant]
     Dates: start: 19950614
  9. ELDEPRYL [Concomitant]
     Dates: start: 19960103
  10. LODINE [Concomitant]
     Dates: start: 19980408

REACTIONS (6)
  - BASAL CELL CARCINOMA [None]
  - LUMBAR RADICULOPATHY [None]
  - ROAD TRAFFIC ACCIDENT [None]
  - SKIN NEOPLASM EXCISION [None]
  - SOMNOLENCE [None]
  - SUDDEN ONSET OF SLEEP [None]
